FAERS Safety Report 18145291 (Version 2)
Quarter: 2020Q3

REPORT INFORMATION
  Report Type: Report from Study
  Country: PT (occurrence: PT)
  Receive Date: 20200813
  Receipt Date: 20200907
  Transmission Date: 20201103
  Serious: Yes (Other)
  Sender: FDA-Public Use
  Company Number: PT-UCBSA-2020031577

PATIENT
  Age: 73 Year
  Sex: Male

DRUGS (3)
  1. SINEMET [Suspect]
     Active Substance: CARBIDOPA\LEVODOPA
     Indication: ON AND OFF PHENOMENON
     Dosage: 150 (UNSPECIFIED UNITS)
  2. ROTIGOTINE [Suspect]
     Active Substance: ROTIGOTINE
     Indication: ON AND OFF PHENOMENON
     Dosage: UNK
  3. XADAGO [Suspect]
     Active Substance: SAFINAMIDE MESYLATE
     Indication: ON AND OFF PHENOMENON

REACTIONS (6)
  - Dysphonia [Unknown]
  - Therapeutic response shortened [Unknown]
  - Dystonia [Unknown]
  - Bradykinesia [Unknown]
  - Anosmia [Unknown]
  - Muscle rigidity [Unknown]
